FAERS Safety Report 9438157 (Version 1)
Quarter: 2013Q3

REPORT INFORMATION
  Report Type: Spontaneous
  Country: US (occurrence: US)
  Receive Date: 20130802
  Receipt Date: 20130802
  Transmission Date: 20140515
  Serious: Yes (Hospitalization)
  Sender: FDA-Public Use
  Company Number: US-BRISTOL-MYERS SQUIBB COMPANY-16936155

PATIENT
  Age: 44 Year
  Sex: Female
  Weight: 76.8 kg

DRUGS (3)
  1. COUMADIN [Suspect]
  2. TREPROSTINIL [Suspect]
     Indication: COR PULMONALE CHRONIC
     Dosage: TOTAL DAILY DOSE:216 MCG?6MCG AEROSOL FOR INHALATION
     Route: 055
     Dates: start: 20120515
  3. TADALAFIL [Concomitant]

REACTIONS (1)
  - Drug level increased [Unknown]
